FAERS Safety Report 7488873-X (Version None)
Quarter: 2011Q2

REPORT INFORMATION
  Report Type: 
  Country: None (occurrence: None)
  Receive Date: 20110518
  Receipt Date: 20110510
  Transmission Date: 20111010
  Serious: Yes (Hospitalization)
  Sender: FDA-Public Use
  Company Number: PHHY2011GB41156

PATIENT
  Age: 2 Year
  Sex: Male

DRUGS (5)
  1. GENTAMICIN [Suspect]
     Dosage: UNK UKN, UNK
  2. STIRIPENTOL [Concomitant]
     Dosage: UNK UKN, UNK
  3. VALPROATE BISMUTH [Concomitant]
     Dosage: UNK UKN, UNK
  4. CLOBAZAM [Concomitant]
     Dosage: UNK UKN, UNK
  5. AMPICILLIN SODIUM/SULBACTAM SODIUM [Suspect]
     Dosage: UNK UKN, UNK

REACTIONS (10)
  - CHEST DISCOMFORT [None]
  - DEPRESSED LEVEL OF CONSCIOUSNESS [None]
  - RESPIRATORY DEPRESSION [None]
  - PNEUMOCOCCAL INFECTION [None]
  - CEREBELLAR ATROPHY [None]
  - ORAL DISORDER [None]
  - MASTOIDITIS [None]
  - OTORRHOEA [None]
  - PYREXIA [None]
  - ENCEPHALOPATHY [None]
